FAERS Safety Report 4818163-2 (Version None)
Quarter: 2005Q4

REPORT INFORMATION
  Report Type: 
  Country: None (occurrence: None)
  Receive Date: 20051031
  Receipt Date: 20051031
  Transmission Date: 20060501
  Serious: Yes (Hospitalization)
  Sender: FDA-Public Use
  Company Number: None

PATIENT
  Age: 73 Year
  Sex: Male
  Weight: 75.2971 kg

DRUGS (1)
  1. WARFARIN SODIUM [Suspect]
     Dosage: 2MG TABLETS PO M, 4MG TABLETS ALL OTHER DAYS
     Route: 048
     Dates: start: 20050920, end: 20050930

REACTIONS (2)
  - MEDICATION ERROR [None]
  - MELAENA [None]
